FAERS Safety Report 17254932 (Version 2)
Quarter: 2020Q3

REPORT INFORMATION
  Report Type: Report from Study
  Country: US (occurrence: US)
  Receive Date: 20200109
  Receipt Date: 20200814
  Transmission Date: 20201102
  Serious: Yes (Hospitalization, Other)
  Sender: FDA-Public Use
  Company Number: US-TAKEDA-2018TUS002831

PATIENT
  Age: 70 Year
  Sex: Female
  Weight: 65 kg

DRUGS (11)
  1. BRIGATINIB [Suspect]
     Active Substance: BRIGATINIB
     Indication: LUNG NEOPLASM MALIGNANT
     Dosage: 180 MILLIGRAM
     Route: 048
  2. BRIGATINIB [Suspect]
     Active Substance: BRIGATINIB
     Dosage: 180 MILLIGRAM, QD
     Route: 048
  3. IRON [Concomitant]
     Active Substance: IRON
     Dosage: UNK
  4. OXYBUTYNIN. [Concomitant]
     Active Substance: OXYBUTYNIN CHLORIDE
     Dosage: UNK
     Route: 065
  5. BRIGATINIB [Suspect]
     Active Substance: BRIGATINIB
     Dosage: 90 MILLIGRAM, QD
     Route: 048
  6. BRIGATINIB [Suspect]
     Active Substance: BRIGATINIB
     Dosage: 90 MILLIGRAM, QD
     Route: 048
  7. VALIUM [Concomitant]
     Active Substance: DIAZEPAM
     Dosage: UNK
     Route: 065
  8. FLUOXETINE [Concomitant]
     Active Substance: FLUOXETINE HYDROCHLORIDE
     Dosage: UNK
     Route: 065
  9. FOLIC ACID. [Concomitant]
     Active Substance: FOLIC ACID
     Dosage: UNK
     Route: 065
  10. GABAPENTIN. [Concomitant]
     Active Substance: GABAPENTIN
     Dosage: UNK
     Route: 065
  11. METOPROLOL. [Concomitant]
     Active Substance: METOPROLOL
     Dosage: UNK
     Route: 065

REACTIONS (13)
  - Abdominal pain upper [Recovering/Resolving]
  - Nausea [Recovering/Resolving]
  - Weight decreased [Unknown]
  - Drug intolerance [Unknown]
  - Chromaturia [Unknown]
  - Blood pressure increased [Recovered/Resolved]
  - Arrhythmia [Recovering/Resolving]
  - Vomiting [Recovering/Resolving]
  - Dyspnoea [Recovered/Resolved]
  - Influenza [Unknown]
  - Swelling [Recovering/Resolving]
  - Metastases to central nervous system [Unknown]
  - Pulmonary oedema [Recovered/Resolved]

NARRATIVE: CASE EVENT DATE: 20200717
